FAERS Safety Report 10036574 (Version 1)
Quarter: 2014Q1

REPORT INFORMATION
  Report Type: Spontaneous
  Country: US (occurrence: US)
  Receive Date: 20140326
  Receipt Date: 20140326
  Transmission Date: 20141002
  Serious: Yes (Hospitalization)
  Sender: FDA-Public Use
  Company Number: US-BIOGENIDEC-2014BI026354

PATIENT
  Age: 56 Year
  Sex: Female

DRUGS (8)
  1. AVONEX [Suspect]
     Indication: MULTIPLE SCLEROSIS
     Route: 030
     Dates: start: 20090901
  2. ATENOLOL [Concomitant]
  3. HYDROXYCHLOROQUINE SULFATE [Concomitant]
  4. LEFLUNOMIDE [Concomitant]
  5. LISINOPRIL [Concomitant]
  6. MECLIZINE HCI [Concomitant]
  7. OMEPRAZOLE [Concomitant]
  8. WARFARIN SODIUM [Concomitant]

REACTIONS (1)
  - Laboratory test abnormal [Unknown]
